FAERS Safety Report 20628926 (Version 4)
Quarter: 2022Q3

REPORT INFORMATION
  Report Type: Report from Study
  Country: US (occurrence: US)
  Receive Date: 20220323
  Receipt Date: 20220714
  Transmission Date: 20221026
  Serious: Yes (Hospitalization, Other)
  Sender: FDA-Public Use
  Company Number: US-TAKEDA-2013BAX053154

PATIENT
  Sex: Female
  Weight: 73 kg

DRUGS (15)
  1. .ALPHA.1-PROTEINASE INHIBITOR HUMAN [Suspect]
     Active Substance: .ALPHA.1-PROTEINASE INHIBITOR HUMAN
     Indication: Alpha-1 antitrypsin deficiency
     Dosage: UNK UNK, 1/WEEK
     Route: 042
  2. .ALPHA.1-PROTEINASE INHIBITOR HUMAN [Suspect]
     Active Substance: .ALPHA.1-PROTEINASE INHIBITOR HUMAN
     Indication: Alpha-1 antitrypsin deficiency
     Dosage: UNK UNK, 1/WEEK
     Route: 042
  3. .ALPHA.1-PROTEINASE INHIBITOR HUMAN [Suspect]
     Active Substance: .ALPHA.1-PROTEINASE INHIBITOR HUMAN
     Dosage: 120 MILLIGRAM/KILOGRAM, Q2WEEKS
     Route: 042
     Dates: start: 20210819
  4. .ALPHA.1-PROTEINASE INHIBITOR HUMAN [Suspect]
     Active Substance: .ALPHA.1-PROTEINASE INHIBITOR HUMAN
     Dosage: 120 MILLIGRAM/KILOGRAM, Q2WEEKS
     Route: 042
     Dates: start: 20210819
  5. TIZANIDINE HYDROCHLORIDE [Concomitant]
     Active Substance: TIZANIDINE HYDROCHLORIDE
  6. GABAPENTIN [Concomitant]
     Active Substance: GABAPENTIN
  7. DIPHENHYDRAMINE [Concomitant]
     Active Substance: DIPHENHYDRAMINE
     Route: 065
  8. SODIUM CHLORIDE [Concomitant]
     Active Substance: SODIUM CHLORIDE
     Route: 065
  9. EPINEPHRINE [Concomitant]
     Active Substance: EPINEPHRINE
     Route: 065
  10. LYSINE [Concomitant]
     Active Substance: LYSINE
     Route: 065
  11. NORVASC [Concomitant]
     Active Substance: AMLODIPINE BESYLATE
     Route: 065
  12. TRELEGY ELLIPTA [Concomitant]
     Active Substance: FLUTICASONE FUROATE\UMECLIDINIUM BROMIDE\VILANTEROL TRIFENATATE
     Route: 065
  13. RAMIPRIL [Concomitant]
     Active Substance: RAMIPRIL
     Route: 065
  14. VITAMINS [Concomitant]
     Active Substance: VITAMINS
     Route: 065
  15. PROAIR HFA [Concomitant]
     Active Substance: ALBUTEROL SULFATE
     Route: 065

REACTIONS (13)
  - Hip fracture [Unknown]
  - Rib fracture [Unknown]
  - Condition aggravated [Unknown]
  - Productive cough [Unknown]
  - Dyspnoea exertional [Unknown]
  - Lung disorder [Unknown]
  - Neck pain [Unknown]
  - Discomfort [Unknown]
  - Sputum discoloured [Unknown]
  - Arthralgia [Unknown]
  - Dyspnoea [Unknown]
  - COVID-19 [Unknown]
  - Hypersensitivity [Unknown]
